FAERS Safety Report 17981673 (Version 1)
Quarter: 2020Q3

REPORT INFORMATION
  Report Type: Report from Study
  Country: IN (occurrence: IN)
  Receive Date: 20200706
  Receipt Date: 20200706
  Transmission Date: 20201103
  Serious: Yes (Other)
  Sender: FDA-Public Use
  Company Number: IN-ROCHE-2635558

PATIENT

DRUGS (2)
  1. BEVACIZUMAB. [Suspect]
     Active Substance: BEVACIZUMAB
     Indication: OVARIAN EPITHELIAL CANCER RECURRENT
     Dosage: CYCLE REPEATED FOR 3 WEEKS
     Route: 065
  2. CAPECITABINE. [Suspect]
     Active Substance: CAPECITABINE
     Indication: OVARIAN EPITHELIAL CANCER RECURRENT
     Dosage: DAY 1 TO DAY 14 IN EACH CYCLE
     Route: 065

REACTIONS (12)
  - Diarrhoea [Unknown]
  - Decreased appetite [Unknown]
  - Proteinuria [Unknown]
  - Neutropenia [Unknown]
  - Palmar-plantar erythrodysaesthesia syndrome [Unknown]
  - Hypertension [Unknown]
  - Nausea [Unknown]
  - Anaemia [Unknown]
  - Fatigue [Unknown]
  - Vomiting [Unknown]
  - Thrombocytopenia [Unknown]
  - Intestinal perforation [Unknown]
